FAERS Safety Report 21129684 (Version 1)
Quarter: 2022Q3

REPORT INFORMATION
  Report Type: Spontaneous
  Country: US (occurrence: US)
  Receive Date: 20220726
  Receipt Date: 20220726
  Transmission Date: 20221027
  Serious: No
  Sender: FDA-Public Use
  Company Number: US-GSK-US2022AMR109339

PATIENT
  Sex: Female

DRUGS (1)
  1. BENLYSTA [Suspect]
     Active Substance: BELIMUMAB
     Indication: Systemic lupus erythematosus
     Dosage: 200 MG/ML, WE
     Route: 058

REACTIONS (7)
  - Condition aggravated [Unknown]
  - Pain [Unknown]
  - Headache [Unknown]
  - Emotional distress [Unknown]
  - Crying [Unknown]
  - Product storage error [Unknown]
  - Product administration error [Unknown]
